FAERS Safety Report 16430615 (Version 1)
Quarter: 2019Q3

REPORT INFORMATION
  Report Type: Spontaneous
  Country: US (occurrence: US)
  Receive Date: 20190613
  Receipt Date: 20190613
  Transmission Date: 20191004
  Serious: Yes (Hospitalization)
  Sender: FDA-Public Use
  Company Number: None

PATIENT
  Age: 30 Year
  Sex: Female
  Weight: 59.85 kg

DRUGS (1)
  1. MEDROXYPROGESTERONE ACETATE. [Suspect]
     Active Substance: MEDROXYPROGESTERONE ACETATE
     Indication: CONTRACEPTION
     Dosage: ?          OTHER FREQUENCY:Q12WKS;?
     Route: 030

REACTIONS (8)
  - Nausea [None]
  - Chest pain [None]
  - Headache [None]
  - Vomiting [None]
  - Dyspnoea [None]
  - Chills [None]
  - Adverse drug reaction [None]
  - Heart rate increased [None]

NARRATIVE: CASE EVENT DATE: 20190606
